FAERS Safety Report 4772745-5 (Version None)
Quarter: 2005Q3

REPORT INFORMATION
  Report Type: 
  Country: None (occurrence: None)
  Receive Date: 20050919
  Receipt Date: 20041206
  Transmission Date: 20060218
  Serious: Yes (Hospitalization)
  Sender: FDA-Public Use
  Company Number: US-ROCHE-388629

PATIENT
  Age: 58 Year
  Sex: Female

DRUGS (11)
  1. PEGASYS [Suspect]
     Route: 058
     Dates: start: 20041008
  2. PEGASYS [Suspect]
     Route: 058
     Dates: start: 20041220, end: 20050404
  3. PEGASYS [Suspect]
     Dosage: DOSAGE REGIMEN REPORTED AS 135 MCG PER WEEK
     Route: 058
  4. PEGASYS [Suspect]
     Route: 058
     Dates: end: 20050615
  5. PEGASYS [Suspect]
     Route: 058
     Dates: start: 20050619
  6. COPEGUS [Suspect]
     Route: 048
     Dates: start: 20041008
  7. COPEGUS [Suspect]
     Route: 048
     Dates: start: 20050204, end: 20050206
  8. COPEGUS [Suspect]
     Route: 048
     Dates: start: 20050207, end: 20050404
  9. COPEGUS [Suspect]
     Route: 048
  10. COPEGUS [Suspect]
     Route: 048
     Dates: end: 20050615
  11. COPEGUS [Suspect]
     Dosage: THERAPY ALSO REPORTED AS FIVE PILLS DAILY.
     Route: 048
     Dates: start: 20050619

REACTIONS (30)
  - ABDOMINAL PAIN [None]
  - ANAEMIA [None]
  - ANOREXIA [None]
  - ASTHENIA [None]
  - BILIRUBIN URINE [None]
  - BLOOD BILIRUBIN INCREASED [None]
  - BLOOD COUNT ABNORMAL [None]
  - BLOOD URINE PRESENT [None]
  - DEPRESSION [None]
  - DIARRHOEA [None]
  - DIZZINESS [None]
  - EYE DISORDER [None]
  - FATIGUE [None]
  - HEADACHE [None]
  - HEPATIC CIRRHOSIS [None]
  - LIVER DISORDER [None]
  - MALAISE [None]
  - NAUSEA [None]
  - NEUTROPENIA [None]
  - PALLOR [None]
  - PROTEIN URINE PRESENT [None]
  - PYREXIA [None]
  - RETINAL DISORDER [None]
  - SLEEP DISORDER [None]
  - THROMBOCYTOPENIA [None]
  - URINE KETONE BODY PRESENT [None]
  - UROBILIN URINE [None]
  - UROSEPSIS [None]
  - VISUAL DISTURBANCE [None]
  - VOMITING [None]
